FAERS Safety Report 15041252 (Version 3)
Quarter: 2018Q3

REPORT INFORMATION
  Report Type: Spontaneous
  Country: FR (occurrence: FR)
  Receive Date: 20180621
  Receipt Date: 20180702
  Transmission Date: 20181010
  Serious: No
  Sender: FDA-Public Use
  Company Number: FR-009507513-1806FRA004593

PATIENT
  Age: 27 Year
  Sex: Female

DRUGS (1)
  1. DIPROSONE [Suspect]
     Active Substance: BETAMETHASONE DIPROPIONATE
     Dosage: UNK
     Dates: start: 20180611, end: 20180611

REACTIONS (2)
  - Abdominal pain [Unknown]
  - Incorrect route of drug administration [Unknown]

NARRATIVE: CASE EVENT DATE: 20180611
